FAERS Safety Report 10764235 (Version 1)
Quarter: 2015Q1

REPORT INFORMATION
  Report Type: Spontaneous
  Country: BR (occurrence: BR)
  Receive Date: 20150205
  Receipt Date: 20150205
  Transmission Date: 20150721
  Serious: Yes (Hospitalization)
  Sender: FDA-Public Use
  Company Number: BR-ROCHE-1532036

PATIENT
  Age: 58 Year
  Sex: Male
  Weight: 70 kg

DRUGS (2)
  1. VALCYTE [Suspect]
     Active Substance: VALGANCICLOVIR HYDROCHLORIDE
     Indication: CYTOMEGALOVIRUS INFECTION
     Route: 042
     Dates: start: 20141208
  2. RIVOTRIL [Concomitant]
     Active Substance: CLONAZEPAM
     Indication: MUSCLE RELAXANT THERAPY
     Dosage: OCCASIONALLY
     Route: 065

REACTIONS (6)
  - Platelet count decreased [Recovering/Resolving]
  - Weight decreased [Recovering/Resolving]
  - General physical health deterioration [Recovering/Resolving]
  - Dehydration [Recovering/Resolving]
  - Immunodeficiency [Recovering/Resolving]
  - Staphylococcal infection [Recovering/Resolving]
